FAERS Safety Report 13088540 (Version 1)
Quarter: 2017Q1

REPORT INFORMATION
  Report Type: Spontaneous
  Country: FR (occurrence: FR)
  Receive Date: 20170105
  Receipt Date: 20170105
  Transmission Date: 20170428
  Serious: Yes (Other)
  Sender: FDA-Public Use
  Company Number: PHHY2017FR000781

PATIENT
  Age: 62 Year
  Sex: Male

DRUGS (3)
  1. CYMEVEN [Suspect]
     Active Substance: GANCICLOVIR
     Indication: TRANSPLANT
     Dosage: 350 MG, BID
     Route: 048
     Dates: start: 20161004
  2. NEORAL [Suspect]
     Active Substance: CYCLOSPORINE
     Indication: TRANSPLANT
     Dosage: 75 MG, BID
     Route: 048
     Dates: start: 20161004
  3. VFEND [Suspect]
     Active Substance: VORICONAZOLE
     Indication: TRANSPLANT
     Dosage: 200 MG, BID
     Route: 048
     Dates: start: 20161004

REACTIONS (7)
  - Asthenia [Not Recovered/Not Resolved]
  - Deafness [Not Recovered/Not Resolved]
  - Disturbance in attention [Not Recovered/Not Resolved]
  - Visual impairment [Not Recovered/Not Resolved]
  - Depression [Not Recovered/Not Resolved]
  - Tremor [Not Recovered/Not Resolved]
  - Fungal infection [Not Recovered/Not Resolved]

NARRATIVE: CASE EVENT DATE: 201610
